FAERS Safety Report 4295967-9 (Version None)
Quarter: 2004Q1

REPORT INFORMATION
  Report Type: 
  Country: None (occurrence: None)
  Receive Date: 20040212
  Receipt Date: 20040203
  Transmission Date: 20041129
  Serious: Yes (Hospitalization)
  Sender: FDA-Public Use
  Company Number: FR-JNJFOC-20040200984

PATIENT
  Sex: Female
  Weight: 40 kg

DRUGS (1)
  1. REMICADE [Suspect]
     Indication: RHEUMATOID ARTHRITIS
     Dosage: INTRAVENOUS
     Route: 042
     Dates: start: 20031201

REACTIONS (4)
  - C-REACTIVE PROTEIN INCREASED [None]
  - POLLAKIURIA [None]
  - PYREXIA [None]
  - WEIGHT DECREASED [None]
